FAERS Safety Report 13261386 (Version 1)
Quarter: 2017Q1

REPORT INFORMATION
  Report Type: Spontaneous
  Country: US (occurrence: US)
  Receive Date: 20170222
  Receipt Date: 20170222
  Transmission Date: 20170428
  Serious: No
  Sender: FDA-Public Use
  Company Number: US-PFIZER INC-2017077453

PATIENT
  Sex: Male

DRUGS (1)
  1. XELJANZ XR [Suspect]
     Active Substance: TOFACITINIB CITRATE
     Dosage: 11 MG, UNK

REACTIONS (9)
  - Dyspnoea [Unknown]
  - Sleep disorder [Unknown]
  - Oedema peripheral [Unknown]
  - Joint swelling [Recovering/Resolving]
  - Hypoaesthesia [Recovering/Resolving]
  - Dry mouth [Unknown]
  - Arthralgia [Recovering/Resolving]
  - Abdominal pain [Unknown]
  - Synovitis [Recovered/Resolved]
